FAERS Safety Report 5461963-9 (Version None)
Quarter: 2007Q3

REPORT INFORMATION
  Report Type: 
  Country: None (occurrence: None)
  Receive Date: 20070918
  Receipt Date: 20070918
  Transmission Date: 20080115
  Serious: Yes (Disabling)
  Sender: FDA-Public Use
  Company Number: None

PATIENT
  Age: 66 Year
  Sex: Male
  Weight: 75.2971 kg

DRUGS (2)
  1. EDEX [Suspect]
     Indication: ERECTILE DYSFUNCTION
     Dosage: 5TO10 MCG 1 INJECTION USED 017
     Dates: start: 20070601
  2. CAVERJECT [Concomitant]

REACTIONS (4)
  - PAINFUL ERECTION [None]
  - PENIS DISORDER [None]
  - PHARMACEUTICAL PRODUCT COMPLAINT [None]
  - SPONTANEOUS PENILE ERECTION [None]
